FAERS Safety Report 16681216 (Version 1)
Quarter: 2019Q3

REPORT INFORMATION
  Report Type: Spontaneous
  Country: GB (occurrence: GB)
  Receive Date: 20190808
  Receipt Date: 20190808
  Transmission Date: 20191004
  Serious: Yes (Other)
  Sender: FDA-Public Use
  Company Number: GB-TEVA-2019-GB-1089764

PATIENT
  Age: 52 Year
  Sex: Female
  Weight: 61 kg

DRUGS (2)
  1. ALENDRONIC ACID [Suspect]
     Active Substance: ALENDRONIC ACID
     Indication: OSTEOPENIA
     Dosage: 70 MG
     Route: 048
     Dates: start: 20190423, end: 20190604
  2. LISINOPRIL. [Concomitant]
     Active Substance: LISINOPRIL
     Dosage: 2.5 MG

REACTIONS (9)
  - Anxiety [Recovering/Resolving]
  - Abdominal pain lower [Recovering/Resolving]
  - Flatulence [Recovering/Resolving]
  - Musculoskeletal discomfort [Recovering/Resolving]
  - Crying [Recovering/Resolving]
  - Depressed mood [Recovering/Resolving]
  - Constipation [Recovering/Resolving]
  - Urine output increased [Recovering/Resolving]
  - Urine output decreased [Recovering/Resolving]

NARRATIVE: CASE EVENT DATE: 20190423
